FAERS Safety Report 17315760 (Version 7)
Quarter: 2023Q1

REPORT INFORMATION
  Report Type: Spontaneous
  Country: US (occurrence: US)
  Receive Date: 20200124
  Receipt Date: 20230301
  Transmission Date: 20230417
  Serious: Yes (Hospitalization, Other)
  Sender: FDA-Public Use
  Company Number: US-SA-2019SA113090

PATIENT
  Age: 46 Year
  Sex: Male
  Weight: 63.492 kg

DRUGS (10)
  1. CEREZYME [Suspect]
     Active Substance: IMIGLUCERASE
     Indication: Gaucher^s disease
     Dosage: 4000 U, QOW
     Route: 041
     Dates: start: 20180123
  2. CEREZYME [Suspect]
     Active Substance: IMIGLUCERASE
     Dosage: 4000 IU, QOW
     Route: 041
     Dates: start: 20190306
  3. CEREZYME [Suspect]
     Active Substance: IMIGLUCERASE
     Dosage: 4000 U, QOW
     Route: 042
     Dates: start: 20200305
  4. METAMUCIL [Concomitant]
     Active Substance: PLANTAGO SEED
  5. SODIUM CHLORIDE [Concomitant]
     Active Substance: SODIUM CHLORIDE
  6. STERILE WATER [Concomitant]
     Active Substance: WATER
  7. EPINEPHRINE [Concomitant]
     Active Substance: EPINEPHRINE
  8. ATORVASTATIN [Concomitant]
     Active Substance: ATORVASTATIN
  9. VITAMIN D2 [Concomitant]
     Active Substance: ERGOCALCIFEROL
  10. FISH OIL [Concomitant]
     Active Substance: FISH OIL

REACTIONS (9)
  - Diverticulitis [Unknown]
  - Intestinal resection [Unknown]
  - Surgery [Unknown]
  - Procedural pain [Unknown]
  - Gastrointestinal disorder [Unknown]
  - Arthralgia [Unknown]
  - Splenomegaly [Unknown]
  - Contusion [Unknown]
  - Product dose omission issue [Unknown]

NARRATIVE: CASE EVENT DATE: 20190419
